FAERS Safety Report 9830919 (Version 1)
Quarter: 2014Q1

REPORT INFORMATION
  Report Type: Spontaneous
  Country: US (occurrence: US)
  Receive Date: 20140120
  Receipt Date: 20140120
  Transmission Date: 20141002
  Serious: Yes (Other)
  Sender: FDA-Public Use
  Company Number: PHHY2014US005079

PATIENT
  Age: 57 Year
  Sex: Female

DRUGS (1)
  1. ZOLEDRONIC ACID [Suspect]
     Indication: RENAL CANCER METASTATIC

REACTIONS (5)
  - Osteonecrosis of jaw [Unknown]
  - Discomfort [Unknown]
  - Bone lesion [Unknown]
  - Loose tooth [Recovered/Resolved]
  - Exposed bone in jaw [Unknown]
